FAERS Safety Report 9291351 (Version 1)
Quarter: 2013Q2

REPORT INFORMATION
  Report Type: Other
  Country: NO (occurrence: NO)
  Receive Date: 20130515
  Receipt Date: 20130515
  Transmission Date: 20140414
  Serious: Yes (Hospitalization)
  Sender: FDA-Public Use
  Company Number: NO-ACTAVIS-2013-08478

PATIENT
  Age: 66 Year
  Sex: Male

DRUGS (5)
  1. OXALIPLATIN (UNKNOWN) [Suspect]
     Indication: COLON CANCER
     Dosage: 170 MG EVERY 2 WEEKS
     Route: 042
     Dates: start: 20121119, end: 20130416
  2. CALCIUM FOLINATE DBL [Concomitant]
     Indication: PRODUCT USED FOR UNKNOWN INDICATION
     Dosage: 100 MG, 2/WEEK
     Route: 065
     Dates: start: 20121119, end: 20130416
  3. FLUOROURACIL [Concomitant]
     Indication: COLON CANCER
     Dosage: 1000 MG, 2/WEEK
     Route: 065
     Dates: start: 20121119, end: 20130416
  4. DEXAMETHASONE [Concomitant]
     Indication: PRODUCT USED FOR UNKNOWN INDICATION
     Dosage: 16 MG, 2/WEEK
     Route: 065
     Dates: start: 20121119, end: 20130416
  5. CETIRIZINE [Concomitant]
     Indication: PRODUCT USED FOR UNKNOWN INDICATION
     Dosage: 10 MG, DAILY
     Route: 065
     Dates: start: 20080201

REACTIONS (7)
  - Liver function test abnormal [Recovered/Resolved]
  - White blood cell count decreased [Recovered/Resolved]
  - Neutrophil count decreased [Recovered/Resolved]
  - Blood alkaline phosphatase increased [None]
  - Aspartate aminotransferase increased [None]
  - Blood bilirubin increased [None]
  - Fibrin degradation products increased [None]
